FAERS Safety Report 9940470 (Version 2)
Quarter: 2014Q1

REPORT INFORMATION
  Report Type: Spontaneous
  Country: RO (occurrence: RO)
  Receive Date: 20140303
  Receipt Date: 20140310
  Transmission Date: 20141002
  Serious: Yes (Hospitalization)
  Sender: FDA-Public Use
  Company Number: RO-009507513-1402ROM011613

PATIENT
  Age: 47 Year
  Sex: Female

DRUGS (8)
  1. THERAPY UNSPECIFIED [Suspect]
     Indication: CHRONIC HEPATITIS C
     Dosage: 1000 MG/DAY
     Route: 048
     Dates: end: 2007
  2. THERAPY UNSPECIFIED [Suspect]
     Dosage: 1000 MG/DAY
     Route: 048
  3. THERAPY UNSPECIFIED [Suspect]
     Indication: CHRONIC HEPATITIS C
     Dosage: 180 MICROGRAM/WEEK
     Dates: end: 2007
  4. THERAPY UNSPECIFIED [Suspect]
     Dosage: 180 MICROGRAM, QW
  5. RIBAVIRIN [Suspect]
     Indication: CHRONIC HEPATITIS C
     Dosage: 1000 MG/DAY
     Route: 048
     Dates: end: 2007
  6. RIBAVIRIN [Suspect]
     Dosage: 1000 MG/DAY
     Route: 048
  7. INTERFERON ALFA [Suspect]
     Indication: CHRONIC HEPATITIS C
     Dosage: 180 MICROGRAM/WEEK
     Dates: end: 2007
  8. INTERFERON ALFA [Suspect]
     Dosage: 180 MICROGRAM, QW

REACTIONS (3)
  - Stress cardiomyopathy [Recovered/Resolved]
  - Thyroiditis [Recovered/Resolved]
  - Hyperthyroidism [Recovered/Resolved]
